FAERS Safety Report 9985978 (Version 1)
Quarter: 2014Q1

REPORT INFORMATION
  Report Type: Report from Study
  Country: US (occurrence: US)
  Receive Date: 20140307
  Receipt Date: 20140307
  Transmission Date: 20141002
  Serious: No
  Sender: FDA-Public Use
  Company Number: US-ABBVIE-13P-163-1086155-00

PATIENT
  Age: 43 Year
  Sex: Female

DRUGS (9)
  1. HUMIRA [Suspect]
     Indication: PSORIATIC ARTHROPATHY
     Dates: start: 20130505
  2. METHOTREXATE [Concomitant]
     Indication: PSORIATIC ARTHROPATHY
     Dosage: WEEKLY
  3. METHOTREXATE [Concomitant]
     Indication: ARTHRITIS
  4. CELEBREX [Concomitant]
     Indication: PSORIATIC ARTHROPATHY
     Dosage: DAILY
  5. CELEBREX [Concomitant]
     Indication: ARTHRITIS
  6. SYNTHROID [Concomitant]
     Indication: HYPOTHYROIDISM
     Dosage: DAILY
  7. ASMANEX [Concomitant]
     Indication: ASTHMA
     Dosage: DAILY
  8. PROAIR [Concomitant]
     Indication: ASTHMA
  9. AMITIZA [Concomitant]
     Indication: INFLAMMATORY BOWEL DISEASE
     Dosage: DAILY

REACTIONS (2)
  - Incorrect dose administered [Recovered/Resolved]
  - Injection site pain [Recovered/Resolved]
